FAERS Safety Report 16653919 (Version 4)
Quarter: 2020Q2

REPORT INFORMATION
  Report Type: Spontaneous
  Country: AU (occurrence: AU)
  Receive Date: 20190731
  Receipt Date: 20200424
  Transmission Date: 20200713
  Serious: Yes (Death, Hospitalization)
  Sender: FDA-Public Use
  Company Number: AU-NOVOPROD-675066

PATIENT
  Age: 28 Year
  Sex: Female
  Weight: 150 kg

DRUGS (11)
  1. NOVOSEVEN [Suspect]
     Active Substance: COAGULATION FACTOR VIIA RECOMBINANT HUMAN
     Indication: TRANSFUSION
     Dosage: UNK
     Route: 042
     Dates: start: 20190718
  2. NOVOSEVEN [Suspect]
     Active Substance: COAGULATION FACTOR VIIA RECOMBINANT HUMAN
     Indication: DISSEMINATED INTRAVASCULAR COAGULATION
  3. NOVOSEVEN [Suspect]
     Active Substance: COAGULATION FACTOR VIIA RECOMBINANT HUMAN
     Indication: DISSEMINATED INTRAVASCULAR COAGULATION
  4. NOVOSEVEN [Suspect]
     Active Substance: COAGULATION FACTOR VIIA RECOMBINANT HUMAN
     Indication: POSTPARTUM HAEMORRHAGE
  5. NOVOSEVEN [Suspect]
     Active Substance: COAGULATION FACTOR VIIA RECOMBINANT HUMAN
     Indication: DISSEMINATED INTRAVASCULAR COAGULATION
  6. NOVOSEVEN [Suspect]
     Active Substance: COAGULATION FACTOR VIIA RECOMBINANT HUMAN
     Indication: POSTPARTUM HAEMORRHAGE
  7. NOVOSEVEN [Suspect]
     Active Substance: COAGULATION FACTOR VIIA RECOMBINANT HUMAN
     Indication: HAEMORRHAGE
     Dosage: UNK
     Route: 042
     Dates: start: 20190719
  8. NOVOSEVEN [Suspect]
     Active Substance: COAGULATION FACTOR VIIA RECOMBINANT HUMAN
     Indication: SHOCK HAEMORRHAGIC
     Dosage: UNK
     Route: 042
     Dates: start: 20190718, end: 20190718
  9. NOVOSEVEN [Suspect]
     Active Substance: COAGULATION FACTOR VIIA RECOMBINANT HUMAN
     Indication: SHOCK HAEMORRHAGIC
     Dosage: UNK
     Route: 065
     Dates: start: 20190718, end: 20190718
  10. NOVOSEVEN [Suspect]
     Active Substance: COAGULATION FACTOR VIIA RECOMBINANT HUMAN
     Indication: SHOCK HAEMORRHAGIC
     Dosage: UNK
     Route: 042
     Dates: start: 20190718, end: 20190718
  11. NOVOSEVEN [Suspect]
     Active Substance: COAGULATION FACTOR VIIA RECOMBINANT HUMAN
     Indication: POSTPARTUM HAEMORRHAGE

REACTIONS (5)
  - Disseminated intravascular coagulation [Fatal]
  - Metabolic acidosis [Fatal]
  - Drug ineffective for unapproved indication [Unknown]
  - Haemorrhage [Fatal]
  - Off label use [Unknown]

NARRATIVE: CASE EVENT DATE: 2019
